FAERS Safety Report 24023323 (Version 2)
Quarter: 2024Q2

REPORT INFORMATION
  Report Type: Report from Study
  Country: CN (occurrence: CN)
  Receive Date: 20240627
  Receipt Date: 20240627
  Transmission Date: 20240716
  Serious: No
  Sender: FDA-Public Use
  Company Number: CN-ROCHE-3491011

PATIENT
  Age: 66 Year
  Sex: Female
  Weight: 75.0 kg

DRUGS (21)
  1. ALECTINIB [Suspect]
     Active Substance: ALECTINIB
     Indication: Non-small cell lung cancer metastatic
     Route: 048
     Dates: start: 20220412
  2. HYDROCHLOROTHIAZIDE [Concomitant]
     Active Substance: HYDROCHLOROTHIAZIDE
     Indication: Hypertension
     Route: 048
     Dates: start: 20230110, end: 20230116
  3. POTASSIUM CHLORIDE [Concomitant]
     Active Substance: POTASSIUM CHLORIDE
     Indication: Hypokalaemia
     Route: 048
     Dates: start: 20230104, end: 20230116
  4. POTASSIUM CHLORIDE [Concomitant]
     Active Substance: POTASSIUM CHLORIDE
     Route: 048
     Dates: start: 20230425, end: 20230807
  5. SODIUM [Concomitant]
     Active Substance: SODIUM
     Dosage: POTASSIUM, MAGNESIUM, CALCIUM,  GLUCOSE INJECTION
     Route: 050
     Dates: start: 20230109, end: 20230109
  6. SPIRONOLACTONE [Concomitant]
     Active Substance: SPIRONOLACTONE
     Indication: Hypokalaemia
     Route: 048
     Dates: start: 20230104, end: 20230116
  7. AMBROXOL HYDROCHLORIDE [Concomitant]
     Active Substance: AMBROXOL HYDROCHLORIDE
     Indication: Upper respiratory tract infection
     Route: 048
     Dates: start: 20230103, end: 20230117
  8. GLYCYRRHIZA [Concomitant]
     Active Substance: LICORICE
     Route: 048
     Dates: start: 20230105, end: 20230105
  9. CODEINE [Concomitant]
     Active Substance: CODEINE
     Route: 048
     Dates: start: 20230107
  10. KUSHEN [Concomitant]
     Route: 042
     Dates: start: 20230104, end: 20230106
  11. BRUCEAE SEED OIL [Concomitant]
     Indication: Neoplasm
     Route: 048
     Dates: start: 20221009
  12. BRUCEAE SEED OIL [Concomitant]
     Dates: start: 20230117, end: 202302
  13. BRUCEAE SEED OIL [Concomitant]
     Dates: start: 20230320, end: 202304
  14. VITAMIN C [Concomitant]
     Active Substance: ASCORBIC ACID
     Route: 042
     Dates: start: 20230103, end: 20230116
  15. ELEMENE [Concomitant]
     Indication: Neoplasm
     Route: 042
     Dates: start: 20230106, end: 20230109
  16. ELEMENE [Concomitant]
     Route: 042
     Dates: start: 20230222, end: 20230301
  17. MAGNESIUM SULFATE [Concomitant]
     Active Substance: MAGNESIUM SULFATE\MAGNESIUM SULFATE HEPTAHYDRATE
     Route: 061
     Dates: start: 20230301, end: 20230302
  18. NIFEDIPINE [Concomitant]
     Active Substance: NIFEDIPINE
     Indication: Hypertension
     Route: 048
     Dates: start: 20230224
  19. NIFEDIPINE [Concomitant]
     Active Substance: NIFEDIPINE
     Route: 048
     Dates: start: 20230614, end: 20230614
  20. SPLEEN POLYPEPTIDE [Concomitant]
     Route: 042
     Dates: start: 20230221, end: 20230221
  21. SPLEEN POLYPEPTIDE [Concomitant]
     Route: 042
     Dates: start: 20230222, end: 20230222

REACTIONS (2)
  - Pneumonia viral [Recovered/Resolved]
  - COVID-19 [Not Recovered/Not Resolved]

NARRATIVE: CASE EVENT DATE: 20230104
